FAERS Safety Report 14706467 (Version 1)
Quarter: 2018Q2

REPORT INFORMATION
  Report Type: Spontaneous
  Country: US (occurrence: US)
  Receive Date: 20180402
  Receipt Date: 20180402
  Transmission Date: 20180711
  Serious: No
  Sender: FDA-Public Use
  Company Number: US-JNJFOC-20180320059

PATIENT
  Sex: Female

DRUGS (3)
  1. TYLENOL REGULAR STRENGTH [Suspect]
     Active Substance: ACETAMINOPHEN
     Indication: HEADACHE
     Route: 065
  2. WOMENS ROGAINE UNSCENTED [Concomitant]
     Active Substance: MINOXIDIL
     Indication: ALOPECIA
     Route: 065
  3. MENS ROGAINE [Concomitant]
     Active Substance: MINOXIDIL
     Indication: ALOPECIA
     Route: 065

REACTIONS (1)
  - Incorrect dose administered [Unknown]
